FAERS Safety Report 4703105-0 (Version None)
Quarter: 2005Q2

REPORT INFORMATION
  Report Type: 
  Country: None (occurrence: None)
  Receive Date: 20050629
  Receipt Date: 20050623
  Transmission Date: 20051028
  Serious: Yes (Hospitalization)
  Sender: FDA-Public Use
  Company Number: 169

PATIENT
  Age: 60 Year
  Sex: Male
  Weight: 101 kg

DRUGS (2)
  1. MELPHALAN [Suspect]
     Indication: MULTIPLE MYELOMA
     Dosage: 400MG CYCLIC
     Route: 042
     Dates: start: 20050515
  2. THALIDOMIDE [Suspect]
     Indication: MULTIPLE MYELOMA
     Dosage: 100MG CYCLIC
     Route: 048
     Dates: start: 20050331, end: 20050420

REACTIONS (8)
  - DIARRHOEA [None]
  - DYSPNOEA [None]
  - LUNG INFILTRATION [None]
  - MUCOSAL INFLAMMATION [None]
  - PANCYTOPENIA [None]
  - PNEUMONIA PARAINFLUENZAE VIRAL [None]
  - PYREXIA [None]
  - RESPIRATORY DISORDER [None]
